FAERS Safety Report 10447350 (Version 1)
Quarter: 2014Q3

REPORT INFORMATION
  Report Type: Spontaneous
  Country: US (occurrence: US)
  Receive Date: 20140911
  Receipt Date: 20140911
  Transmission Date: 20150326
  Serious: No
  Sender: FDA-Public Use
  Company Number: US-GLAXOSMITHKLINE-A1071557A

PATIENT
  Sex: Male

DRUGS (17)
  1. TERAZOSIN [Concomitant]
     Active Substance: TERAZOSIN\TERAZOSIN HYDROCHLORIDE
  2. LISINOPRIL. [Concomitant]
     Active Substance: LISINOPRIL
  3. QUETIAPINE [Concomitant]
     Active Substance: QUETIAPINE
  4. ESCITALOPRAM [Concomitant]
     Active Substance: ESCITALOPRAM OXALATE
  5. FISH OIL [Concomitant]
     Active Substance: FISH OIL
  6. CLONAZEPAM. [Concomitant]
     Active Substance: CLONAZEPAM
  7. MAGNESIUM [Concomitant]
     Active Substance: MAGNESIUM
  8. CENTRUM SILVER [Concomitant]
     Active Substance: VITAMINS
  9. EPIVIR HBV [Suspect]
     Active Substance: LAMIVUDINE
     Indication: CHRONIC HEPATITIS B
     Dosage: 100MG PER DAY
     Route: 048
     Dates: start: 2000
  10. OMEPRAZOLE. [Concomitant]
     Active Substance: OMEPRAZOLE
  11. ATORVASTATIN [Concomitant]
     Active Substance: ATORVASTATIN
  12. LEVOXYL [Concomitant]
     Active Substance: LEVOTHYROXINE SODIUM
  13. MYCOPHENOLATE [Concomitant]
     Active Substance: MYCOPHENOLIC ACID
  14. OXYCODONE [Concomitant]
     Active Substance: OXYCODONE
  15. TRAZODONE [Concomitant]
     Active Substance: TRAZODONE HYDROCHLORIDE
  16. HUMULIN N [Concomitant]
     Active Substance: INSULIN HUMAN
  17. TACROLIMUS. [Concomitant]
     Active Substance: TACROLIMUS

REACTIONS (1)
  - Amnesia [Recovering/Resolving]

NARRATIVE: CASE EVENT DATE: 2012
